FAERS Safety Report 25347296 (Version 1)
Quarter: 2025Q2

REPORT INFORMATION
  Report Type: Spontaneous
  Country: FI (occurrence: FI)
  Receive Date: 20250522
  Receipt Date: 20250522
  Transmission Date: 20250717
  Serious: Yes (Other)
  Sender: STRIDES
  Company Number: FI-STRIDES ARCOLAB LIMITED-2025SP006606

PATIENT
  Age: 26 Year
  Sex: Female

DRUGS (1)
  1. METHYLPHENIDATE [Suspect]
     Active Substance: METHYLPHENIDATE
     Indication: Attention deficit hyperactivity disorder
     Route: 042

REACTIONS (3)
  - Histiocytosis [Recovering/Resolving]
  - Drug abuser [Unknown]
  - Incorrect route of product administration [Unknown]
